FAERS Safety Report 6651486-3 (Version None)
Quarter: 2010Q1

REPORT INFORMATION
  Report Type: 
  Country: None (occurrence: None)
  Receive Date: 20100325
  Receipt Date: 20100315
  Transmission Date: 20100710
  Serious: Yes (Other)
  Sender: FDA-Public Use
  Company Number: JP-WYE-H14182610

PATIENT
  Age: 53 Year
  Sex: Male

DRUGS (7)
  1. ZOSYN [Suspect]
     Indication: ARTERIOVENOUS GRAFT SITE INFECTION
     Route: 042
     Dates: start: 20090106, end: 20090113
  2. AMPICILLIN [Concomitant]
     Indication: SEPSIS
     Dosage: 4 G DAILY
     Route: 042
     Dates: start: 20090105, end: 20090105
  3. CEFOTIAM [Concomitant]
     Indication: SEPSIS
     Dosage: 3 G DAILY
     Route: 042
     Dates: start: 20081224, end: 20081228
  4. CIPROFLOXACIN [Concomitant]
     Indication: SEPSIS
     Dosage: 400 MG DAILY
     Route: 042
     Dates: start: 20081229, end: 20090104
  5. VANCOMYCIN [Concomitant]
     Indication: PNEUMONIA
     Dosage: 500 MG DAILY
     Route: 042
     Dates: start: 20090107, end: 20090110
  6. VANCOMYCIN [Concomitant]
     Indication: STAPHYLOCOCCAL INFECTION
  7. CEFTRIAXONE SODIUM [Concomitant]
     Indication: SEPSIS
     Dosage: 4 G DAILY
     Route: 042
     Dates: start: 20081221, end: 20081223

REACTIONS (3)
  - CLOSTRIDIUM DIFFICILE COLITIS [None]
  - PNEUMONIA STAPHYLOCOCCAL [None]
  - PYREXIA [None]
